FAERS Safety Report 4528288-7 (Version None)
Quarter: 2004Q4

REPORT INFORMATION
  Report Type: 
  Country: None (occurrence: None)
  Receive Date: 20041130
  Receipt Date: 20040803
  Transmission Date: 20050328
  Serious: No
  Sender: FDA-Public Use
  Company Number: WAES 0408USA00435

PATIENT
  Age: 43 Year
  Sex: Male

DRUGS (3)
  1. ZETIA [Suspect]
     Dosage: 10 MG/DAILY/PO
     Route: 048
  2. PRAVACHOL [Concomitant]
  3. ASPIRIN [Concomitant]

REACTIONS (1)
  - BLOOD CREATINE PHOSPHOKINASE INCREASED [None]
